FAERS Safety Report 11571869 (Version 3)
Quarter: 2015Q4

REPORT INFORMATION
  Report Type: Spontaneous
  Country: US (occurrence: US)
  Receive Date: 20150916
  Receipt Date: 20151110
  Transmission Date: 20160304
  Serious: No
  Sender: FDA-Public Use
  Company Number: US-ELI_LILLY_AND_COMPANY-US200909007157

PATIENT
  Sex: Female

DRUGS (3)
  1. FORTEO [Suspect]
     Active Substance: TERIPARATIDE
     Dosage: 20 DF, QD
     Dates: end: 201011
  2. FORTEO [Suspect]
     Active Substance: TERIPARATIDE
     Dosage: 20 DF, QD
  3. FORTEO [Suspect]
     Active Substance: TERIPARATIDE
     Indication: OSTEOPOROSIS
     Dosage: 20 D/F, DAILY (1/D)
     Dates: start: 200910

REACTIONS (4)
  - Eye irritation [Unknown]
  - Kidney infection [Unknown]
  - Pneumonia [Unknown]
  - Hot flush [Not Recovered/Not Resolved]
